FAERS Safety Report 8624028 (Version 2)
Quarter: 2012Q4

REPORT INFORMATION
  Report Type: Report from Study
  Country: US (occurrence: US)
  Receive Date: 20120620
  Receipt Date: 20121128
  Transmission Date: 20130627
  Serious: No
  Sender: FDA-Public Use
  Company Number: US-UCBSA-059602

PATIENT
  Age: 46 Year
  Sex: Male
  Weight: 84.4 kg

DRUGS (1)
  1. LACOSAMIDE [Suspect]

REACTIONS (1)
  - Bradycardia [Recovered/Resolved]
